FAERS Safety Report 5142089-0 (Version None)
Quarter: 2006Q4

REPORT INFORMATION
  Report Type: 
  Country: None (occurrence: None)
  Receive Date: 20061102
  Receipt Date: 20061009
  Transmission Date: 20070319
  Serious: No
  Sender: FDA-Public Use
  Company Number: PHBS2006GR15621

PATIENT
  Age: 52 Year
  Sex: Female

DRUGS (1)
  1. COMTAN [Suspect]

REACTIONS (1)
  - PANCREATIC CYST [None]
